FAERS Safety Report 24862400 (Version 1)
Quarter: 2025Q1

REPORT INFORMATION
  Report Type: Spontaneous
  Country: DK (occurrence: DK)
  Receive Date: 20250120
  Receipt Date: 20250120
  Transmission Date: 20250408
  Serious: Yes (Hospitalization)
  Sender: AMGEN
  Company Number: DK-AMGEN-DNKSP2024257618

PATIENT
  Age: 41 Year
  Sex: Female

DRUGS (1)
  1. USTEKINUMAB [Suspect]
     Active Substance: USTEKINUMAB
     Indication: Crohn^s disease
     Dosage: 90 MILLIGRAM, Q8WK
     Route: 058
     Dates: start: 20241203

REACTIONS (9)
  - Vertigo [Recovered/Resolved]
  - Malaise [Recovered/Resolved]
  - Tinnitus [Recovered/Resolved]
  - Presyncope [Recovered/Resolved]
  - Chest discomfort [Recovered/Resolved]
  - Hypersensitivity [Recovered/Resolved]
  - Head discomfort [Recovered/Resolved]
  - Oropharyngeal discomfort [Recovered/Resolved]
  - Asthenia [Recovered/Resolved]

NARRATIVE: CASE EVENT DATE: 20241203
